FAERS Safety Report 21039821 (Version 1)
Quarter: 2022Q3

REPORT INFORMATION
  Report Type: Spontaneous
  Country: JP (occurrence: JP)
  Receive Date: 20220704
  Receipt Date: 20220704
  Transmission Date: 20221027
  Serious: Yes (Other)
  Sender: FDA-Public Use
  Company Number: JP-PFIZER INC-PV202200012601

PATIENT
  Age: 91 Year
  Sex: Male

DRUGS (1)
  1. SERTRALINE HYDROCHLORIDE [Suspect]
     Active Substance: SERTRALINE HYDROCHLORIDE
     Dosage: 25 MG
     Route: 048

REACTIONS (3)
  - Neuroleptic malignant syndrome [Unknown]
  - Musculoskeletal stiffness [Unknown]
  - Drug withdrawal syndrome [Unknown]
